FAERS Safety Report 9739012 (Version 1)
Quarter: 2013Q4

REPORT INFORMATION
  Report Type: Spontaneous
  Country: FR (occurrence: FR)
  Receive Date: 20131209
  Receipt Date: 20131209
  Transmission Date: 20140711
  Serious: Yes (Disabling)
  Sender: FDA-Public Use
  Company Number: PHHY2013FR142103

PATIENT
  Sex: Male

DRUGS (1)
  1. TEGRETOL [Suspect]
     Indication: BIPOLAR DISORDER
     Dosage: 400 MG, QD (PROLONGED-RELEASE DISPERSIBLE TABLET)
     Route: 048
     Dates: start: 2003

REACTIONS (1)
  - Ageusia [Not Recovered/Not Resolved]
